FAERS Safety Report 20669518 (Version 1)
Quarter: 2022Q2

REPORT INFORMATION
  Report Type: Spontaneous
  Country: US (occurrence: None)
  Receive Date: 20220403
  Receipt Date: 20220403
  Transmission Date: 20220720
  Serious: Yes (Life-Threatening)
  Sender: FDA-Public Use
  Company Number: None

PATIENT
  Age: 56 Year
  Sex: Male
  Weight: 92.25 kg

DRUGS (1)
  1. ENTRESTO [Suspect]
     Active Substance: SACUBITRIL\VALSARTAN
     Indication: Cardiac failure
     Dosage: FREQUENCY : TWICE A DAY;?
     Route: 048
     Dates: start: 20210722, end: 20220401

REACTIONS (3)
  - Cardiac flutter [None]
  - Extrasystoles [None]
  - Therapeutic drug monitoring analysis incorrectly performed [None]

NARRATIVE: CASE EVENT DATE: 20220325
